FAERS Safety Report 13435923 (Version 1)
Quarter: 2017Q2

REPORT INFORMATION
  Report Type: Spontaneous
  Country: US (occurrence: US)
  Receive Date: 20170412
  Receipt Date: 20170412
  Transmission Date: 20170830
  Serious: No
  Sender: FDA-Public Use
  Company Number: US-SA-2016SA128787

PATIENT
  Age: 72 Year
  Sex: Male

DRUGS (1)
  1. ALLEGRA ALLERGY [Suspect]
     Active Substance: FEXOFENADINE HYDROCHLORIDE
     Indication: MULTIPLE ALLERGIES
     Dosage: START DATE IS SPRING 2016
     Route: 048
     Dates: start: 2016

REACTIONS (5)
  - Eructation [Unknown]
  - Abdominal discomfort [Unknown]
  - Asthma [Unknown]
  - Flatulence [Unknown]
  - Hypervigilance [Unknown]
